FAERS Safety Report 4528662-9 (Version None)
Quarter: 2004Q4

REPORT INFORMATION
  Report Type: 
  Country: None (occurrence: None)
  Receive Date: 20041216
  Receipt Date: 20041213
  Transmission Date: 20050328
  Serious: Yes (Other)
  Sender: FDA-Public Use
  Company Number: CA-MERCK-0412CAN00087

PATIENT
  Age: 84 Year
  Sex: Male

DRUGS (2)
  1. VIOXX [Suspect]
     Route: 048
     Dates: start: 20020101
  2. FLUVASTATIN SODIUM [Concomitant]
     Indication: GOUT
     Route: 065

REACTIONS (1)
  - CEREBROVASCULAR ACCIDENT [None]
